FAERS Safety Report 8425470-3 (Version None)
Quarter: 2012Q2

REPORT INFORMATION
  Report Type: 
  Country: None (occurrence: None)
  Receive Date: 20120605
  Receipt Date: 20120522
  Transmission Date: 20120825
  Serious: Yes (Other)
  Sender: FDA-Public Use
  Company Number: 2012P1031777

PATIENT
  Age: 19 Year
  Sex: Female

DRUGS (4)
  1. FENTANYL CITRATE [Suspect]
     Indication: ANAESTHESIA
     Dosage: IV
     Route: 042
  2. PROPOFOL [Concomitant]
  3. REMIFENTANIL [Concomitant]
  4. KETOROLAC TROMETHAMINE [Concomitant]

REACTIONS (8)
  - DYSPNOEA [None]
  - LIP SWELLING [None]
  - BLOOD PRESSURE DECREASED [None]
  - HEART RATE DECREASED [None]
  - ERYTHEMA [None]
  - PHARYNGEAL OEDEMA [None]
  - SWELLING FACE [None]
  - HYPERSENSITIVITY [None]
